FAERS Safety Report 4392523-9 (Version None)
Quarter: 2004Q3

REPORT INFORMATION
  Report Type: 
  Country: None (occurrence: None)
  Receive Date: 20040702
  Receipt Date: 20011203
  Transmission Date: 20050211
  Serious: Yes (Hospitalization)
  Sender: FDA-Public Use
  Company Number: ENT 2001-0234

PATIENT
  Age: 50 Year
  Sex: Male

DRUGS (7)
  1. COMTAN [Suspect]
     Indication: PARKINSON'S DISEASE
     Dosage: 1000 MG (200 MG, 5 IN 1 D)
     Route: 048
  2. AMIODARONE HCL [Concomitant]
  3. METILDIGOXIN [Concomitant]
  4. ENALAPRIL MALEATE [Concomitant]
  5. WARFARIN SODIUM [Concomitant]
  6. PRAMIPEXOLE [Concomitant]
  7. LEVODOPA W/BENSERAZIDE [Concomitant]

REACTIONS (14)
  - ANTITHROMBIN III DECREASED [None]
  - ERYTHEMA MULTIFORME [None]
  - FIBRIN D DIMER INCREASED [None]
  - GENERAL PHYSICAL HEALTH DETERIORATION [None]
  - HYPERPYREXIA [None]
  - HYPOTENSION [None]
  - IATROGENIC INJURY [None]
  - LEUKOCYTOSIS [None]
  - NEUTROPHILIA [None]
  - OXYGEN SATURATION DECREASED [None]
  - PULMONARY CONGESTION [None]
  - RED BLOOD CELL SEDIMENTATION RATE INCREASED [None]
  - RENAL FAILURE ACUTE [None]
  - SKIN REACTION [None]
